FAERS Safety Report 5916543-5 (Version None)
Quarter: 2008Q4

REPORT INFORMATION
  Report Type: 
  Country: None (occurrence: None)
  Receive Date: 20081013
  Receipt Date: 20081003
  Transmission Date: 20090506
  Serious: Yes (Hospitalization)
  Sender: FDA-Public Use
  Company Number: B0539999A

PATIENT
  Age: 22 Year
  Sex: Female

DRUGS (1)
  1. AUGMENTIN '125' [Suspect]
     Indication: COUGH
     Dosage: 1G THREE TIMES PER DAY
     Route: 048
     Dates: start: 20080401

REACTIONS (5)
  - GINGIVAL BLEEDING [None]
  - IDIOPATHIC THROMBOCYTOPENIC PURPURA [None]
  - MICROCYTIC ANAEMIA [None]
  - PURPURA [None]
  - THROMBOCYTOPENIA [None]
